FAERS Safety Report 12736022 (Version 1)
Quarter: 2016Q3

REPORT INFORMATION
  Report Type: Report from Study
  Country: US (occurrence: US)
  Receive Date: 20160913
  Receipt Date: 20160913
  Transmission Date: 20161109
  Serious: No
  Sender: FDA-Public Use
  Company Number: US-AMGEN-USASL2016120048

PATIENT
  Age: 59 Year
  Sex: Female

DRUGS (1)
  1. ENBREL [Suspect]
     Active Substance: ETANERCEPT
     Indication: PRODUCT USED FOR UNKNOWN INDICATION
     Dosage: UNK
     Route: 065

REACTIONS (5)
  - Mobility decreased [Unknown]
  - Respiratory disorder [Recovering/Resolving]
  - Nasopharyngitis [Recovering/Resolving]
  - Cough [Recovering/Resolving]
  - Pain [Unknown]

NARRATIVE: CASE EVENT DATE: 2016
